FAERS Safety Report 6162511-0 (Version None)
Quarter: 2009Q2

REPORT INFORMATION
  Report Type: 
  Country: None (occurrence: None)
  Receive Date: 20090417
  Receipt Date: 20090402
  Transmission Date: 20091009
  Serious: Yes (Life-Threatening)
  Sender: FDA-Public Use
  Company Number: GXKR2009CH04289

PATIENT
  Age: 90 Year
  Sex: Female
  Weight: 48 kg

DRUGS (16)
  1. AMOXICLLIN + CLAVULANATE POTASSIUM (NGX) (AMOXICILLIN, CLAVULANATE) [Suspect]
     Dosage: 1200 MG, BID, IV DRIP
     Route: 041
     Dates: start: 20081230, end: 20090106
  2. BACTRIM [Suspect]
     Dosage: 400 MG, BID, ORAL
     Route: 048
     Dates: start: 20090106, end: 20090114
  3. VANCOCIN HYDROCHLORIDE [Suspect]
     Dosage: 250 MG, QID, ORAL
     Route: 048
     Dates: start: 20090123, end: 20090130
  4. DAFALGAN (PARACETAMOL) FILM-COATED TABLET, 1G [Suspect]
     Dosage: 1000 MG, TID, ORAL
     Route: 048
     Dates: start: 20081219, end: 20090121
  5. TORSEMIDE [Suspect]
     Dosage: 10 MG, BID, ORAL
     Route: 048
     Dates: start: 20081215, end: 20090203
  6. ALDACTONE [Suspect]
     Dosage: 12.5 MG, QD, ORAL
     Route: 048
     Dates: start: 20081219, end: 20090225
  7. ENALAPRIL MALEATE [Suspect]
     Dosage: 2.5 MG, BID, ORAL
     Route: 048
     Dates: start: 20081216, end: 20081230
  8. ZOLOFT [Suspect]
     Dosage: 25 MG, ORAL
     Route: 048
     Dates: start: 20090114, end: 20090208
  9. TOLVON (MIANSERIN HYDROCHLORIDE) TABLET, 30 MG [Concomitant]
  10. SEROQUEL (QUETIAPINE FUMARATE) FILM-COATED TABLET, 25 MG [Concomitant]
  11. EUTHYROX (LEVOTHYROXINE SODIUM) TABLET, 0.1 MG [Concomitant]
  12. DISTRANEURIN (CLOMETHIAZOLE EDISILATE) [Concomitant]
  13. FLAGYL (METRONIDAZOLE BENZOATE) TABLET, 250 MG [Concomitant]
  14. CLEXANE (ENOXAPARIN SODIUM, HEPARIN-FRACTION, SODIUM SALT) VIAL, 100 M [Concomitant]
  15. FOLVITE (FOLIC ACID) [Concomitant]
  16. CALCIMAGON (CALCIUM CARBONATE) [Concomitant]

REACTIONS (2)
  - DRUG INTERACTION [None]
  - RENAL FAILURE [None]
